FAERS Safety Report 6402771-1 (Version None)
Quarter: 2009Q4

REPORT INFORMATION
  Report Type: 
  Country: None (occurrence: None)
  Receive Date: 20091016
  Receipt Date: 20070316
  Transmission Date: 20100525
  Serious: Yes (Disabling)
  Sender: FDA-Public Use
  Company Number: US-ASTRAZENECA-2006UW11002

PATIENT
  Sex: Female
  Weight: 82.1 kg

DRUGS (13)
  1. SEROQUEL [Suspect]
     Dosage: 25-100 MG
     Route: 048
     Dates: start: 20030722
  2. ZYPREXA [Suspect]
  3. AVANDIA [Concomitant]
     Route: 048
  4. ZOLOFT [Concomitant]
     Dosage: 50-100 MG
     Route: 048
  5. RISPERDAL [Concomitant]
     Route: 048
  6. SINGULAIR [Concomitant]
     Route: 048
  7. GLIPIZIDE [Concomitant]
     Route: 048
  8. METFORMIN HYDROCHLORIDE [Concomitant]
     Dosage: 500-850 MG
     Route: 048
  9. CELEXA [Concomitant]
     Route: 048
  10. ACTOS [Concomitant]
     Route: 048
  11. LORAZEPAM [Concomitant]
     Route: 048
  12. NEURONTIN [Concomitant]
     Route: 048
  13. PREDNISONE [Concomitant]
     Dosage: 10-20 MG
     Route: 048

REACTIONS (1)
  - ILL-DEFINED DISORDER [None]
